FAERS Safety Report 4908950-4 (Version None)
Quarter: 2006Q1

REPORT INFORMATION
  Report Type: 
  Country: None (occurrence: None)
  Receive Date: 20060209
  Receipt Date: 20060131
  Transmission Date: 20060701
  Serious: Yes (Other)
  Sender: FDA-Public Use
  Company Number: 2006015306

PATIENT
  Sex: Male

DRUGS (1)
  1. ACTIFED COLD + ALLERGY (PSEUDOEPHEDRINE, TRIPROLIDINE) [Suspect]
     Dosage: 1 TABLET ONCE, ORAL
     Route: 048
     Dates: start: 20060129, end: 20060129

REACTIONS (3)
  - ABASIA [None]
  - FEELING ABNORMAL [None]
  - MOBILITY DECREASED [None]
